FAERS Safety Report 6484783-5 (Version None)
Quarter: 2009Q4

REPORT INFORMATION
  Report Type: 
  Country: None (occurrence: None)
  Receive Date: 20091209
  Receipt Date: 20081029
  Transmission Date: 20100525
  Serious: No
  Sender: FDA-Public Use
  Company Number: A0754255A

PATIENT
  Age: 80 Year
  Sex: Male

DRUGS (3)
  1. AVANDAMET [Suspect]
     Dosage: 1TAB PER DAY
     Route: 048
     Dates: start: 20080101, end: 20080101
  2. GLIMEPIRIDE [Concomitant]
  3. SIMVASTATIN [Concomitant]

REACTIONS (1)
  - DIARRHOEA [None]
